APPROVED DRUG PRODUCT: SULFADIAZINE SODIUM
Active Ingredient: SULFADIAZINE SODIUM
Strength: 250MG/ML
Dosage Form/Route: INJECTABLE;INJECTION
Application: N004054 | Product #002
Applicant: LEDERLE LABORATORIES DIV AMERICAN CYANAMID CO
Approved: Approved Prior to Jan 1, 1982 | RLD: No | RS: No | Type: DISCN